FAERS Safety Report 5741394-4 (Version None)
Quarter: 2008Q2

REPORT INFORMATION
  Report Type: 
  Country: None (occurrence: None)
  Receive Date: 20080514
  Receipt Date: 20080504
  Transmission Date: 20081010
  Serious: Yes (Death, Other)
  Sender: FDA-Public Use
  Company Number: CERZ-1000153

PATIENT
  Age: 3 Year
  Sex: Male
  Weight: 12 kg

DRUGS (1)
  1. CEREZYME [Suspect]
     Indication: GAUCHER'S DISEASE
     Dosage: 600 U, Q2W, INTRAVENOUS
     Route: 042
     Dates: start: 20051001, end: 20080123

REACTIONS (5)
  - BRONCHIAL SECRETION RETENTION [None]
  - CONVULSION [None]
  - CYANOSIS [None]
  - DEVELOPMENTAL DELAY [None]
  - RESPIRATORY FAILURE [None]
